FAERS Safety Report 16358872 (Version 1)
Quarter: 2019Q2

REPORT INFORMATION
  Report Type: Spontaneous
  Country: DE (occurrence: DE)
  Receive Date: 20190527
  Receipt Date: 20190527
  Transmission Date: 20190711
  Serious: Yes (Other)
  Sender: FDA-Public Use
  Company Number: DE-ASTRAZENECA-2019SE76813

PATIENT
  Sex: Female

DRUGS (3)
  1. FASENRA [Suspect]
     Active Substance: BENRALIZUMAB
     Route: 058
     Dates: start: 20190507
  2. CORTISOL [Concomitant]
     Active Substance: HYDROCORTISONE
  3. TAVEGIL [Concomitant]
     Active Substance: CLEMASTINE FUMARATE

REACTIONS (5)
  - Skin reaction [Unknown]
  - Pruritus [Unknown]
  - Rash [Unknown]
  - Swelling face [Unknown]
  - Erythema [Unknown]
